FAERS Safety Report 5381589-5 (Version None)
Quarter: 2007Q2

REPORT INFORMATION
  Report Type: 
  Country: None (occurrence: None)
  Receive Date: 20070629
  Receipt Date: 20070102
  Transmission Date: 20071010
  Serious: Yes (Death)
  Sender: FDA-Public Use
  Company Number: 2007000696

PATIENT
  Age: 52 Year
  Sex: Male

DRUGS (1)
  1. ZOLOFT [Suspect]
     Indication: INSOMNIA
     Dosage: (1 IN 1 D);
     Dates: start: 20050513

REACTIONS (4)
  - ABNORMAL BEHAVIOUR [None]
  - COMPLETED SUICIDE [None]
  - CONFUSIONAL STATE [None]
  - LETHARGY [None]
